FAERS Safety Report 7520607-2 (Version None)
Quarter: 2011Q2

REPORT INFORMATION
  Report Type: 
  Country: None (occurrence: None)
  Receive Date: 20110603
  Receipt Date: 20110524
  Transmission Date: 20111010
  Serious: Yes (Hospitalization)
  Sender: FDA-Public Use
  Company Number: US-BIOGENIDEC-2011BI001442

PATIENT
  Age: 33 Year
  Sex: Female

DRUGS (4)
  1. TYSABRI [Suspect]
     Indication: MULTIPLE SCLEROSIS
     Route: 042
     Dates: start: 20100226
  2. VERAPAMIL [Concomitant]
     Indication: MIGRAINE
  3. EFFEXOR [Concomitant]
     Indication: DEPRESSION
  4. TOPAMAX [Concomitant]
     Indication: MIGRAINE

REACTIONS (8)
  - MUSCULAR WEAKNESS [None]
  - MUSCLE SPASMS [None]
  - MULTIPLE SCLEROSIS RELAPSE [None]
  - ASTHENIA [None]
  - MUSCLE FATIGUE [None]
  - HYPOAESTHESIA [None]
  - SINUSITIS [None]
  - APHASIA [None]
